FAERS Safety Report 7423127-9 (Version None)
Quarter: 2011Q2

REPORT INFORMATION
  Report Type: 
  Country: None (occurrence: None)
  Receive Date: 20110419
  Receipt Date: 20110412
  Transmission Date: 20111010
  Serious: Yes (Hospitalization)
  Sender: FDA-Public Use
  Company Number: ES-B.I. PHARMACEUTICALS,INC./RIDGEFIELD-2011-DE-02430GD

PATIENT

DRUGS (2)
  1. ATROVENT [Suspect]
     Indication: ASTHMA
     Route: 055
  2. VENTOLIN [Suspect]
     Indication: ASTHMA
     Route: 055

REACTIONS (1)
  - RESPIRATORY FAILURE [None]
